FAERS Safety Report 16474651 (Version 3)
Quarter: 2019Q4

REPORT INFORMATION
  Report Type: Spontaneous
  Country: US (occurrence: US)
  Receive Date: 20190625
  Receipt Date: 20191101
  Transmission Date: 20200122
  Serious: No
  Sender: FDA-Public Use
  Company Number: US-PFIZER INC-2019272208

PATIENT
  Age: 51 Year
  Sex: Female

DRUGS (12)
  1. LOSARTAN HCT 50-12 [Concomitant]
     Dosage: UNK
     Dates: start: 2011
  2. TAMOXIFEN [Concomitant]
     Active Substance: TAMOXIFEN
     Dosage: UNK
     Dates: start: 201305, end: 201605
  3. LORAZEPAM. [Concomitant]
     Active Substance: LORAZEPAM
     Dosage: UNK
     Dates: start: 2013
  4. SYNTHROID [Concomitant]
     Active Substance: LEVOTHYROXINE SODIUM
     Dosage: 125 MG, UNK
     Dates: start: 2015
  5. DOCETAXEL ACCORD [Suspect]
     Active Substance: DOCETAXEL
     Indication: BREAST CANCER FEMALE
     Dosage: 95 MG, EVERY 3 WEEKS, 3 CYCLES
     Dates: start: 20130306, end: 20130429
  6. TAXOTERE [Suspect]
     Active Substance: DOCETAXEL
     Indication: BREAST CANCER FEMALE
     Dosage: 95 MG, EVERY 3 WEEKS, 3 CYCLES
     Dates: start: 20130306, end: 20130429
  7. PARAPLATIN [Concomitant]
     Active Substance: CARBOPLATIN
     Dosage: 750 MG, UNK
  8. SYNTHROID [Concomitant]
     Active Substance: LEVOTHYROXINE SODIUM
     Dosage: 125 MG, UNK
     Dates: start: 1995, end: 2015
  9. LOSARTAN. [Concomitant]
     Active Substance: LOSARTAN
     Dosage: UNK
     Dates: start: 2011
  10. HERCEPTIN [Concomitant]
     Active Substance: TRASTUZUMAB
     Indication: BREAST CANCER FEMALE
     Dosage: UNK
     Dates: start: 20130603, end: 20140127
  11. DOCETAXEL. [Suspect]
     Active Substance: DOCETAXEL
     Indication: BREAST CANCER FEMALE
     Dosage: 95 MG, EVERY 3 WEEKS, 3 CYCLES
     Dates: start: 20130306, end: 20130429
  12. SYNTHROID [Concomitant]
     Active Substance: LEVOTHYROXINE SODIUM
     Dosage: UNK
     Dates: start: 2005, end: 2015

REACTIONS (5)
  - Hair colour changes [Not Recovered/Not Resolved]
  - Alopecia [Unknown]
  - Hair disorder [Not Recovered/Not Resolved]
  - Hair texture abnormal [Not Recovered/Not Resolved]
  - Mental disorder [Unknown]

NARRATIVE: CASE EVENT DATE: 20130321
